FAERS Safety Report 7811634-6 (Version None)
Quarter: 2011Q4

REPORT INFORMATION
  Report Type: 
  Country: None (occurrence: None)
  Receive Date: 20111013
  Receipt Date: 20111007
  Transmission Date: 20120403
  Serious: Yes (Other)
  Sender: FDA-Public Use
  Company Number: JP-PFIZER INC-2011218808

PATIENT
  Age: 76 Year
  Sex: Female

DRUGS (16)
  1. DIGOXIN [Concomitant]
     Dosage: UNK
  2. LYRICA [Suspect]
     Indication: CARPAL TUNNEL SYNDROME
  3. OMEPRAZOLE [Concomitant]
     Dosage: UNK
  4. LANTHANUM CARBONATE [Concomitant]
     Dosage: UNK
  5. PURSENNID [Concomitant]
     Dosage: UNK
  6. CINACALCET HYDROCHLORIDE [Concomitant]
     Dosage: UNK
  7. PROMACTA [Concomitant]
     Dosage: UNK
  8. LEVOCARNITINE [Concomitant]
     Dosage: UNK
  9. PANCREAZE [Concomitant]
     Dosage: UNK
  10. LYRICA [Suspect]
     Indication: PAIN IN EXTREMITY
     Dosage: 75 MG, 1X/DAY
     Route: 048
     Dates: start: 20110911, end: 20110911
  11. NITOROL R [Concomitant]
     Dosage: UNK
  12. ALENDRONATE SODIUM [Concomitant]
     Dosage: UNK
  13. TICLOPIDINE HCL [Concomitant]
     Dosage: UNK
  14. METHYCOBAL [Concomitant]
     Dosage: UNK
  15. ALLOPURINOL [Concomitant]
     Dosage: UNK
  16. RISUMIC [Concomitant]
     Dosage: UNK

REACTIONS (2)
  - ECZEMA [None]
  - HYPERSOMNIA [None]
